FAERS Safety Report 9371916 (Version 2)
Quarter: 2013Q3

REPORT INFORMATION
  Report Type: Spontaneous
  Country: CZ (occurrence: None)
  Receive Date: 20130618
  Receipt Date: 20130708
  Transmission Date: 20140515
  Serious: Yes (Hospitalization, Disabling)
  Sender: FDA-Public Use
  Company Number: 2013036473

PATIENT
  Age: 62 Year
  Sex: Female

DRUGS (6)
  1. PRIVIGEN [Suspect]
     Indication: CHRONIC INFLAMMATORY DEMYELINATING POLYRADICULONEUROPATHY
     Dosage: 573 ML, MAX. INFUSION RATE 413 ML/H [SIC1], INTRAVENOUS (NOT OTHERWISE SPECIFIED)
     Route: 042
     Dates: start: 20130417, end: 20130417
  2. EUTHYROX (LEVOTHYROXINE SODIUM)(TABLET)(LEVOTHYROXINE SODIUM) [Concomitant]
  3. FRAXIPARINE (NADROPARIN CALCIUM) [Concomitant]
  4. SOLU-MEDROL (METHYLPREDNISOLONE SODIUM SUCCINATE) [Concomitant]
  5. HELICID /00661201/ (OMEPRAZOLE) [Concomitant]
  6. KALIUM CHLORATUM /01739301/ (KALIUM CHLORATUM) [Concomitant]

REACTIONS (4)
  - Hospitalisation [None]
  - Drug ineffective for unapproved indication [None]
  - Chronic inflammatory demyelinating polyradiculoneuropathy [None]
  - Condition aggravated [None]
